FAERS Safety Report 21676794 (Version 1)
Quarter: 2022Q4

REPORT INFORMATION
  Report Type: Report from Study
  Country: JP (occurrence: JP)
  Receive Date: 20221202
  Receipt Date: 20221202
  Transmission Date: 20230113
  Serious: Yes (Other)
  Sender: FDA-Public Use
  Company Number: JP-TAKEDA-2022TJP077991

PATIENT
  Sex: Male
  Weight: 75.9 kg

DRUGS (11)
  1. LEUPROLIDE ACETATE [Suspect]
     Active Substance: LEUPROLIDE ACETATE
     Indication: Bulbospinal muscular atrophy congenital
     Dosage: 11.25 MILLIGRAM, Q3MONTHS
     Route: 058
     Dates: start: 20210406
  2. AMLODIPINE BESYLATE [Concomitant]
     Active Substance: AMLODIPINE BESYLATE
     Indication: Bulbospinal muscular atrophy congenital
     Dosage: 5 MILLIGRAM
     Route: 065
  3. BELSOMRA [Concomitant]
     Active Substance: SUVOREXANT
     Indication: Product used for unknown indication
     Dosage: 20 MILLIGRAM
     Route: 065
     Dates: start: 20210921, end: 20211101
  4. METFORMIN HYDROCHLORIDE [Concomitant]
     Active Substance: METFORMIN HYDROCHLORIDE
     Indication: Bulbospinal muscular atrophy congenital
     Dosage: 250 MILLIGRAM
     Route: 065
     Dates: start: 20220308
  5. SHAKUYAKUKANZOTO [Concomitant]
     Active Substance: HERBALS
     Indication: Bulbospinal muscular atrophy congenital
     Dosage: 2.5 GRAM
     Route: 065
     Dates: start: 20210511
  6. LINAGLIPTIN [Concomitant]
     Active Substance: LINAGLIPTIN
     Indication: Bulbospinal muscular atrophy congenital
     Dosage: 5 MILLIGRAM
     Route: 065
     Dates: start: 20220125
  7. LOXOPROFEN SODIUM [Concomitant]
     Active Substance: LOXOPROFEN SODIUM
     Indication: Product used for unknown indication
     Dosage: 60 MILLIGRAM
     Route: 065
  8. DAPAGLIFLOZIN [Concomitant]
     Active Substance: DAPAGLIFLOZIN
     Indication: Bulbospinal muscular atrophy congenital
     Dosage: 5 MILLIGRAM
     Route: 065
     Dates: start: 20210921
  9. CANDESARTAN [Concomitant]
     Active Substance: CANDESARTAN
     Indication: Bulbospinal muscular atrophy congenital
     Dosage: 4 MILLIGRAM
     Route: 065
  10. PREGABALIN [Concomitant]
     Active Substance: PREGABALIN
     Indication: Product used for unknown indication
     Dosage: 75 MILLIGRAM
     Route: 065
  11. REBAMIPIDE [Concomitant]
     Active Substance: REBAMIPIDE
     Indication: Product used for unknown indication
     Dosage: 100 MILLIGRAM
     Route: 065
     Dates: start: 20220125

REACTIONS (2)
  - Diabetes mellitus [Not Recovered/Not Resolved]
  - Hypertension [Recovering/Resolving]
